FAERS Safety Report 16950664 (Version 1)
Quarter: 2019Q4

REPORT INFORMATION
  Report Type: Report from Study
  Country: BR (occurrence: BR)
  Receive Date: 20191023
  Receipt Date: 20191023
  Transmission Date: 20200122
  Serious: Yes (Other)
  Sender: FDA-Public Use
  Company Number: BR-UCBSA-2017027864

PATIENT
  Sex: Female
  Weight: 74 kg

DRUGS (3)
  1. LACOSAMIDE. [Suspect]
     Active Substance: LACOSAMIDE
     Indication: PETIT MAL EPILEPSY
     Dosage: STRENGTH: 100 MG, Y (BID)
     Route: 048
     Dates: start: 201703
  2. TEGRETOL [Concomitant]
     Active Substance: CARBAMAZEPINE
  3. LACOSAMIDE. [Suspect]
     Active Substance: LACOSAMIDE
     Dosage: 50 MILLIGRAM, 2X/DAY (BID)
     Route: 048
     Dates: start: 2017, end: 2017

REACTIONS (2)
  - Petit mal epilepsy [Recovering/Resolving]
  - Intentional product misuse [Unknown]

NARRATIVE: CASE EVENT DATE: 2017
